FAERS Safety Report 6027205-0 (Version None)
Quarter: 2008Q4

REPORT INFORMATION
  Report Type: 
  Country: None (occurrence: None)
  Receive Date: 20081222
  Receipt Date: 20081120
  Transmission Date: 20090506
  Serious: No
  Sender: FDA-Public Use
  Company Number: US-WYE-H06933008

PATIENT
  Sex: Female

DRUGS (1)
  1. PRISTIQ [Suspect]
     Dosage: ORAL
     Route: 048
     Dates: start: 20081113

REACTIONS (2)
  - CONTACT LENS COMPLICATION [None]
  - MYDRIASIS [None]
